FAERS Safety Report 5966518-5 (Version None)
Quarter: 2008Q4

REPORT INFORMATION
  Report Type: 
  Country: None (occurrence: None)
  Receive Date: 20081125
  Receipt Date: 20081021
  Transmission Date: 20090506
  Serious: No
  Sender: FDA-Public Use
  Company Number: US-AMGEN-KDL314580

PATIENT
  Sex: Male

DRUGS (2)
  1. ENBREL [Suspect]
     Indication: ANKYLOSING SPONDYLITIS
  2. VIOXX [Concomitant]

REACTIONS (5)
  - ABASIA [None]
  - GOUT [None]
  - HERPES ZOSTER [None]
  - NASOPHARYNGITIS [None]
  - SKIN INFECTION [None]
